FAERS Safety Report 6359198-0 (Version None)
Quarter: 2009Q3

REPORT INFORMATION
  Report Type: 
  Country: None (occurrence: None)
  Receive Date: 20090917
  Receipt Date: 20070702
  Transmission Date: 20100115
  Serious: Yes (Hospitalization)
  Sender: FDA-Public Use
  Company Number: US-ASTRAZENECA-2006UW25159

PATIENT
  Age: 17884 Day
  Sex: Female
  Weight: 65.8 kg

DRUGS (20)
  1. SEROQUEL [Suspect]
     Indication: DEPRESSION
     Route: 048
     Dates: start: 20030101
  2. SEROQUEL [Suspect]
     Dosage: 25 - 50 MG DAILY
     Route: 048
     Dates: start: 20030205
  3. PROGRAF [Concomitant]
     Indication: IMMUNOSUPPRESSION
     Dosage: 6 - 24 MG DAILY
     Route: 048
     Dates: start: 20030205
  4. PREDNISONE [Concomitant]
     Dosage: 10 - 20 MG DAILY
     Route: 048
     Dates: start: 20030205
  5. VALTREX [Concomitant]
     Route: 048
     Dates: start: 20030205
  6. NORVASC [Concomitant]
     Route: 048
     Dates: start: 20030205
  7. LOVASTATIN [Concomitant]
     Route: 048
     Dates: start: 20040814
  8. PEPCID [Concomitant]
     Route: 048
     Dates: start: 20030205
  9. PENTAMIDINE ISETHIONATE [Concomitant]
     Dates: start: 20030205
  10. NEXIUM [Concomitant]
     Dosage: 20 - 40 MG DAILY
     Route: 048
     Dates: start: 20060531
  11. AMITRIPTYLINE [Concomitant]
     Dosage: 10 - 20 MG DAILY
     Route: 048
     Dates: start: 20060709
  12. ASPIRIN [Concomitant]
     Route: 048
     Dates: start: 20060107
  13. METOPROLOL TARTRATE [Concomitant]
     Route: 048
     Dates: start: 20060709
  14. AMARYL [Concomitant]
     Indication: DIABETES MELLITUS
     Dosage: 4 - 8 MG DAILY
     Route: 048
     Dates: start: 20040814
  15. FOSAMAX PLUS D [Concomitant]
     Dosage: 70/2800 MG WEEKLY
     Route: 048
     Dates: start: 20060709
  16. TUMS [Concomitant]
     Route: 048
     Dates: start: 20040814
  17. OXYCODONE HCL [Concomitant]
     Indication: PAIN
     Dosage: 15 - 40 MG DAILY
     Route: 048
     Dates: start: 20060226
  18. PREMARIN [Concomitant]
     Dates: start: 20021127
  19. TRAZODONE [Concomitant]
     Dates: start: 20060107
  20. PROTONIX [Concomitant]
     Route: 048
     Dates: start: 20040814

REACTIONS (5)
  - CHRONIC HEPATIC FAILURE [None]
  - DIABETES MELLITUS [None]
  - LIVER TRANSPLANT [None]
  - LIVER TRANSPLANT REJECTION [None]
  - TYPE 2 DIABETES MELLITUS [None]
